FAERS Safety Report 9377875 (Version 1)
Quarter: 2013Q3

REPORT INFORMATION
  Report Type: Spontaneous
  Country: US (occurrence: US)
  Receive Date: 20130701
  Receipt Date: 20130701
  Transmission Date: 20140515
  Serious: Yes (Hospitalization)
  Sender: FDA-Public Use
  Company Number: US-BAYER-2013-079981

PATIENT
  Age: 45 Year
  Sex: Female

DRUGS (9)
  1. BEYAZ [Suspect]
  2. SYNTHROID [Concomitant]
     Dosage: UNK
     Route: 048
     Dates: start: 20130327
  3. XANAX [Concomitant]
     Dosage: 1 MG, THREE TIMES DAILY
     Route: 048
     Dates: start: 20130327
  4. COLECALCIFEROL [Concomitant]
     Dosage: 400 UNIT DAILY
     Route: 048
     Dates: start: 20130327
  5. BENAZEPRIL [Concomitant]
     Dosage: 40 MG, DAILY
     Route: 048
     Dates: start: 20130327
  6. BUPROPION [Concomitant]
     Dosage: 75 MG, THREE TIMES DAILY
     Route: 048
     Dates: start: 20130327
  7. HYDROCHLOROTHIAZIDE [Concomitant]
     Dosage: 25 MG, DAILY
     Route: 048
     Dates: start: 20130327
  8. TRAMADOL [Concomitant]
     Dosage: 50 MG, EVERY SIX HRS
     Route: 048
     Dates: start: 20130327
  9. AMLODIPINE [Concomitant]
     Dosage: 10 MG, DAILY
     Route: 048
     Dates: start: 20130327

REACTIONS (1)
  - Pulmonary embolism [Recovered/Resolved]
